FAERS Safety Report 7919070-9 (Version None)
Quarter: 2011Q4

REPORT INFORMATION
  Report Type: 
  Country: None (occurrence: None)
  Receive Date: 20111116
  Receipt Date: 20111107
  Transmission Date: 20120403
  Serious: Yes (Hospitalization, Other)
  Sender: FDA-Public Use
  Company Number: CA-ASTRAZENECA-2011SE67464

PATIENT
  Age: 60 Year
  Sex: Female

DRUGS (7)
  1. SEROQUEL [Suspect]
     Route: 048
  2. ZIPRASIDONE HYDROCHLORIDE [Suspect]
     Route: 065
  3. ZIPRASIDONE HYDROCHLORIDE [Suspect]
     Route: 048
  4. CLONAZEPAM [Concomitant]
  5. SEROQUEL [Suspect]
     Route: 048
  6. LOXAPINE [Concomitant]
  7. ACCUTANE [Concomitant]

REACTIONS (6)
  - CONDITION AGGRAVATED [None]
  - AGITATION [None]
  - DEPRESSION [None]
  - HALLUCINATION, AUDITORY [None]
  - PSYCHOTIC DISORDER [None]
  - SUICIDAL IDEATION [None]
